FAERS Safety Report 21479854 (Version 1)
Quarter: 2022Q4

REPORT INFORMATION
  Report Type: Spontaneous
  Country: US (occurrence: US)
  Receive Date: 20221019
  Receipt Date: 20221019
  Transmission Date: 20230113
  Serious: No
  Sender: FDA-Public Use
  Company Number: US-UROGEN PHARMA LTD.-2022-UGN-000112

PATIENT

DRUGS (4)
  1. JELMYTO [Suspect]
     Active Substance: MITOMYCIN
     Indication: Transitional cell cancer of the renal pelvis and ureter
     Dosage: ONE TIMES PER WEEK (INSTILLATION)
     Dates: start: 20220909, end: 20220909
  2. JELMYTO [Suspect]
     Active Substance: MITOMYCIN
     Dosage: ONE TIMES PER WEEK (INSTILLATION)
     Dates: start: 20220916, end: 20220916
  3. JELMYTO [Suspect]
     Active Substance: MITOMYCIN
     Dosage: ONE TIMES PER WEEK (INSTILLATION)
     Dates: start: 20220923, end: 20220923
  4. JELMYTO [Suspect]
     Active Substance: MITOMYCIN
     Dosage: ONE TIMES PER WEEK (INSTILLATION)
     Dates: start: 20221003, end: 20221003

REACTIONS (2)
  - Vomiting [Unknown]
  - Pruritus [Unknown]

NARRATIVE: CASE EVENT DATE: 20221003
